FAERS Safety Report 19665381 (Version 1)
Quarter: 2021Q3

REPORT INFORMATION
  Report Type: Spontaneous
  Country: US (occurrence: US)
  Receive Date: 20210805
  Receipt Date: 20210805
  Transmission Date: 20211014
  Serious: No
  Sender: FDA-Public Use
  Company Number: None

PATIENT

DRUGS (2)
  1. MOBIC [Suspect]
     Active Substance: MELOXICAM
  2. MOTRIN [Suspect]
     Active Substance: IBUPROFEN

REACTIONS (11)
  - Dyspnoea [None]
  - Mood swings [None]
  - Gastrooesophageal reflux disease [None]
  - Headache [None]
  - Hallucination, visual [None]
  - Skin disorder [None]
  - Haemoptysis [None]
  - Hypertension [None]
  - Anxiety [None]
  - Haematochezia [None]
  - Feeling abnormal [None]
